FAERS Safety Report 9337807 (Version 1)
Quarter: 2013Q2

REPORT INFORMATION
  Report Type: Spontaneous
  Country: US (occurrence: US)
  Receive Date: 20130607
  Receipt Date: 20130607
  Transmission Date: 20140414
  Serious: No
  Sender: FDA-Public Use
  Company Number: US-TEVA-410592USA

PATIENT
  Age: 47 Year
  Sex: Female

DRUGS (1)
  1. PROAIR HFA [Suspect]
     Indication: BRONCHOSPASM

REACTIONS (1)
  - Dyspnoea [Unknown]
